FAERS Safety Report 4389325-6 (Version None)
Quarter: 2004Q2

REPORT INFORMATION
  Report Type: 
  Country: None (occurrence: None)
  Receive Date: 20040628
  Receipt Date: 20040616
  Transmission Date: 20050107
  Serious: Yes (Hospitalization, Other)
  Sender: FDA-Public Use
  Company Number: CZ-JNJFOC-20040601735

PATIENT
  Age: 54 Year
  Sex: Female

DRUGS (5)
  1. REMICADE [Suspect]
     Indication: RHEUMATOID ARTHRITIS
     Dosage: 3 MG/KG, 1 IN 2 MONTH, INTRAVENOUS
     Route: 042
     Dates: start: 20030314
  2. PREDNISOLONE [Concomitant]
  3. METHOTREXATUM (METHOTREXATE) [Concomitant]
  4. FELODIPIDUM (FELODIPINE) [Concomitant]
  5. CELECOXIBUM (CELECOXIB) [Concomitant]

REACTIONS (3)
  - HIP ARTHROPLASTY [None]
  - LESION OF SCIATIC NERVE [None]
  - POST PROCEDURAL COMPLICATION [None]
